FAERS Safety Report 8238052-3 (Version None)
Quarter: 2012Q1

REPORT INFORMATION
  Report Type: 
  Country: None (occurrence: None)
  Receive Date: 20120327
  Receipt Date: 20120322
  Transmission Date: 20120608
  Serious: Yes (Life-Threatening, Hospitalization)
  Sender: FDA-Public Use
  Company Number: BR-GLAXOSMITHKLINE-A0966567A

PATIENT
  Sex: Female
  Weight: 100 kg

DRUGS (2)
  1. PROMACTA [Suspect]
     Indication: IDIOPATHIC THROMBOCYTOPENIC PURPURA
     Dates: start: 20110701, end: 20111101
  2. CORTICOSTEROID [Concomitant]

REACTIONS (4)
  - EPISTAXIS [None]
  - VAGINAL HAEMORRHAGE [None]
  - ANAL HAEMORRHAGE [None]
  - THROMBOCYTOSIS [None]
